FAERS Safety Report 14814398 (Version 2)
Quarter: 2018Q2

REPORT INFORMATION
  Report Type: Spontaneous
  Country: US (occurrence: US)
  Receive Date: 20180426
  Receipt Date: 20180501
  Transmission Date: 20180711
  Serious: Yes (Other)
  Sender: FDA-Public Use
  Company Number: US-ELI_LILLY_AND_COMPANY-US201804009518

PATIENT
  Age: 34 Year
  Sex: Female

DRUGS (8)
  1. ADCIRCA [Suspect]
     Active Substance: TADALAFIL
     Indication: PRODUCT USED FOR UNKNOWN INDICATION
     Dosage: UNK UNK, UNKNOWN
     Route: 065
     Dates: start: 201802, end: 201804
  2. REMODULIN [Suspect]
     Active Substance: TREPROSTINIL
     Dosage: UNK UNK, OTHER  (31)
     Dates: start: 20180323
  3. REMODULIN [Suspect]
     Active Substance: TREPROSTINIL
     Dosage: UNK, OTHER (12 NG/KG/MIN)
     Dates: end: 201803
  4. PREDNISONE. [Concomitant]
     Active Substance: PREDNISONE
     Indication: SYSTEMIC LUPUS ERYTHEMATOSUS
     Dosage: UNK UNK, UNKNOWN
     Route: 065
  5. CELLCEPT [Concomitant]
     Active Substance: MYCOPHENOLATE MOFETIL\MYCOPHENOLATE MOFETIL HYDROCHLORIDE
     Indication: SYSTEMIC LUPUS ERYTHEMATOSUS
     Dosage: UNK UNK, UNKNOWN
     Route: 065
  6. PLAQUENIL [Concomitant]
     Active Substance: HYDROXYCHLOROQUINE SULFATE
     Indication: SYSTEMIC LUPUS ERYTHEMATOSUS
     Dosage: UNK UNK, UNKNOWN
     Route: 065
  7. REMODULIN [Suspect]
     Active Substance: TREPROSTINIL
     Dosage: UNK UNK, OTHER (35.30 NG/KG/MIN)
     Dates: start: 20180411
  8. REMODULIN [Suspect]
     Active Substance: TREPROSTINIL
     Indication: PULMONARY HYPERTENSION
     Dosage: UNK, UNKNOWN
     Dates: start: 20160620

REACTIONS (3)
  - Epistaxis [Unknown]
  - Tinnitus [Unknown]
  - Vision blurred [Unknown]

NARRATIVE: CASE EVENT DATE: 20180419
